FAERS Safety Report 4568418-4 (Version None)
Quarter: 2005Q1

REPORT INFORMATION
  Report Type: 
  Country: None (occurrence: None)
  Receive Date: 20050131
  Receipt Date: 20050113
  Transmission Date: 20050727
  Serious: Yes (Disabling)
  Sender: FDA-Public Use
  Company Number: DSA_25266_2004

PATIENT
  Age: 60 Year
  Sex: Male

DRUGS (2)
  1. ENALAPRIL MALEATE AND HYDROCHLOROTHIAZIDE [Suspect]
     Indication: HYPERTENSION
     Dosage: PO
     Route: 048
     Dates: start: 20040123
  2. BENSERAZIDE HYDROCHLORIDE + LEVODOPA [Suspect]
     Indication: PARKINSON'S DISEASE
     Dosage: DF PO
     Route: 048
     Dates: start: 19990615

REACTIONS (3)
  - ARTHRALGIA [None]
  - OSTEOARTHRITIS [None]
  - OSTEOCHONDROSIS [None]
